FAERS Safety Report 7321162-2 (Version None)
Quarter: 2011Q1

REPORT INFORMATION
  Report Type: 
  Country: None (occurrence: None)
  Receive Date: 20110228
  Receipt Date: 20110222
  Transmission Date: 20110831
  Serious: Yes (Hospitalization)
  Sender: FDA-Public Use
  Company Number: US-JNJFOC-20110207419

PATIENT
  Sex: Female
  Weight: 44.45 kg

DRUGS (5)
  1. DURAGESIC-50 [Suspect]
     Indication: PAIN
     Route: 062
  2. OXYCODONE [Concomitant]
     Indication: BREAKTHROUGH PAIN
     Dosage: AS NEEDED
     Route: 048
  3. FENTANYL-100 [Suspect]
     Indication: PAIN
     Route: 062
  4. ALPRAZOLAM [Concomitant]
     Indication: ANXIETY
     Route: 048
  5. MULTI-VITAMINS [Concomitant]
     Indication: GENERAL PHYSICAL CONDITION
     Route: 048

REACTIONS (9)
  - WITHDRAWAL SYNDROME [None]
  - MALAISE [None]
  - PAIN [None]
  - CROHN'S DISEASE [None]
  - CARPAL TUNNEL SYNDROME [None]
  - CONSTIPATION [None]
  - VOMITING [None]
  - INTESTINAL OBSTRUCTION [None]
  - SCAR [None]
